FAERS Safety Report 5512754-1 (Version None)
Quarter: 2007Q4

REPORT INFORMATION
  Report Type: 
  Country: None (occurrence: None)
  Receive Date: 20071108
  Receipt Date: 20071026
  Transmission Date: 20080405
  Serious: Yes (Hospitalization, Other)
  Sender: FDA-Public Use
  Company Number: 2007-02707

PATIENT
  Sex: Male

DRUGS (1)
  1. PREDNISONE TAB [Suspect]
     Indication: THYROID DISORDER
     Dosage: 40 MG, DAILY, ORAL
     Route: 048
     Dates: start: 20060307, end: 20070322

REACTIONS (8)
  - CHORIORETINAL SCAR [None]
  - CHORIORETINOPATHY [None]
  - EYE HAEMORRHAGE [None]
  - PHOTOPHOBIA [None]
  - RETINAL DISORDER [None]
  - VISUAL DISTURBANCE [None]
  - VITREOUS FLOATERS [None]
  - XANTHOPSIA [None]
